FAERS Safety Report 4749885-X (Version None)
Quarter: 2005Q3

REPORT INFORMATION
  Report Type: 
  Country: None (occurrence: None)
  Receive Date: 20050818
  Receipt Date: 20050805
  Transmission Date: 20060218
  Serious: Yes (Hospitalization)
  Sender: FDA-Public Use
  Company Number: 216699

PATIENT
  Age: 76 Year
  Sex: Female
  Weight: 116.8 kg

DRUGS (19)
  1. RITUXAN [Suspect]
     Indication: NON-HODGKIN'S LYMPHOMA
     Dosage: 810 MG, 1/MONTH, INTRAVENOUS
     Route: 042
     Dates: start: 20050607
  2. CYCLOPHOSPHAMIDE [Suspect]
     Indication: NON-HODGKIN'S LYMPHOMA
     Dosage: 1620MG, 1/MONTH, INTRAVENOUS
     Route: 042
     Dates: start: 20050608
  3. VINCRISTINE [Suspect]
     Indication: NON-HODGKIN'S LYMPHOMA
     Dosage: 2 MG, 1/MONTH, INTRAVENOUS
     Route: 042
     Dates: start: 20050608
  4. PREDNISONE [Suspect]
     Indication: NON-HODGKIN'S LYMPHOMA
     Dosage: 80 MG, 1/MONTH, ORAL
     Route: 048
     Dates: start: 20050607
  5. NEULASTA [Suspect]
     Indication: NON-HODGKIN'S LYMPHOMA
     Dosage: 6 MG, 1/MONTH, SUBCUTANEOUS
     Route: 058
     Dates: start: 20050609
  6. SODIUM CHLORIDE [Suspect]
     Dosage: INTRAVENOUS
     Route: 042
  7. ALBUTEROL [Concomitant]
  8. ASPIRIN [Concomitant]
  9. BUMETANIDE [Concomitant]
  10. DIFLUCAN [Concomitant]
  11. 70/30 HUMULIN (NPH HUMAN INSULIN ISOPHANE SUSPENSION, INSULIN HUMAN) [Concomitant]
  12. SPIRIVA [Concomitant]
  13. DETROL [Concomitant]
  14. LIPITOR [Concomitant]
  15. KLOR-CON [Concomitant]
  16. PLAVIX [Concomitant]
  17. PREVACID [Concomitant]
  18. ATIVAN [Concomitant]
  19. ZYRTEC [Concomitant]

REACTIONS (5)
  - ATRIAL FIBRILLATION [None]
  - BLOOD POTASSIUM DECREASED [None]
  - BUNDLE BRANCH BLOCK LEFT [None]
  - HYPERGLYCAEMIA [None]
  - SUPRAVENTRICULAR TACHYCARDIA [None]
